FAERS Safety Report 8610415-3 (Version None)
Quarter: 2012Q3

REPORT INFORMATION
  Report Type: 
  Country: None (occurrence: None)
  Receive Date: 20120801
  Receipt Date: 20120725
  Transmission Date: 20120928
  Serious: Yes (Death)
  Sender: FDA-Public Use
  Company Number: 2012PROUSA01717

PATIENT
  Age: 81 Year
  Sex: Male
  Weight: 79.4 kg

DRUGS (19)
  1. LEVOFLOXACIN (LEVOFLOXACIN HEMIHYDRATE) [Concomitant]
  2. MISOPROSTOL [Concomitant]
  3. HYDRALAZINE (HYDRALAZINE HYDROCHLORIDE) [Concomitant]
  4. CLONIDINE [Concomitant]
  5. OXYCODONE HCL [Concomitant]
  6. XIFAXAN [Concomitant]
  7. VITAMIN E (TOCOPHERYL ACETATE) [Concomitant]
  8. PROTONIX [Concomitant]
  9. PROSCAR [Concomitant]
  10. POTASSIUM (POTASSIUM) [Concomitant]
  11. PROAIR (SALBUTAMOL SULFATE) [Concomitant]
  12. MORPHINE [Concomitant]
  13. ZOFRAN [Concomitant]
  14. INSULIN (INSULIN PORCINE) [Concomitant]
  15. PROVENGE [Suspect]
     Indication: PROSTATE CANCER METASTATIC
     Dosage: 250 ML, SINGLE, INTRAVENOUS
     Route: 042
     Dates: start: 20120625, end: 20120625
  16. PROMETHEZINE HCL [Concomitant]
  17. LACTULOSE [Concomitant]
  18. MELOXICAM [Concomitant]
  19. AMBIEN [Concomitant]

REACTIONS (10)
  - SPEECH DISORDER [None]
  - COUGH [None]
  - BOWEL MOVEMENT IRREGULARITY [None]
  - HEPATIC FAILURE [None]
  - BLOOD POTASSIUM INCREASED [None]
  - PROSTATE CANCER METASTATIC [None]
  - MYELODYSPLASTIC SYNDROME [None]
  - DISEASE PROGRESSION [None]
  - DISSEMINATED INTRAVASCULAR COAGULATION [None]
  - DYSPNOEA [None]
